FAERS Safety Report 6653250-8 (Version None)
Quarter: 2010Q1

REPORT INFORMATION
  Report Type: 
  Country: None (occurrence: None)
  Receive Date: 20100326
  Receipt Date: 20100324
  Transmission Date: 20100710
  Serious: Yes (Death, Other)
  Sender: FDA-Public Use
  Company Number: JP-BAYER-200914591BYL

PATIENT
  Age: 74 Year
  Sex: Male
  Weight: 67 kg

DRUGS (10)
  1. NEXAVAR [Suspect]
     Indication: HEPATIC NEOPLASM MALIGNANT
     Dosage: UNIT DOSE: 200 MG
     Route: 048
     Dates: start: 20091021, end: 20091116
  2. LACTULOSE [Suspect]
     Indication: HEPATIC ENCEPHALOPATHY
     Route: 048
     Dates: start: 20091102, end: 20091109
  3. AMINOLEBAN EN [Suspect]
     Indication: HEPATIC ENCEPHALOPATHY
     Route: 048
     Dates: start: 20091102, end: 20091113
  4. LASIX [Concomitant]
     Route: 048
     Dates: start: 20091017, end: 20091116
  5. ALDACTONE [Concomitant]
     Route: 048
     Dates: start: 20091017, end: 20091116
  6. LANSOPRAZOLE [Concomitant]
     Indication: PROPHYLAXIS AGAINST GASTROINTESTINAL ULCER
     Route: 048
     Dates: start: 20091017
  7. LOXONIN [Concomitant]
     Route: 048
     Dates: start: 20091003
  8. MUCOSTA [Concomitant]
     Indication: PROPHYLAXIS AGAINST GASTROINTESTINAL ULCER
     Route: 048
     Dates: start: 20091003
  9. GABAPEN [Concomitant]
     Route: 048
     Dates: start: 20091003
  10. DECADRON [Concomitant]
     Route: 048
     Dates: start: 20091010

REACTIONS (3)
  - DEATH [None]
  - HEPATIC ENCEPHALOPATHY [None]
  - RASH [None]
